FAERS Safety Report 6011734-X (Version None)
Quarter: 2008Q4

REPORT INFORMATION
  Report Type: 
  Country: None (occurrence: None)
  Receive Date: 20081218
  Receipt Date: 20070629
  Transmission Date: 20090506
  Serious: Yes (Other)
  Sender: FDA-Public Use
  Company Number: JP-ROCHE-492250

PATIENT
  Sex: Male

DRUGS (3)
  1. TAMIFLU [Suspect]
     Route: 048
     Dates: start: 20070317, end: 20070321
  2. CALONAL [Concomitant]
     Route: 048
     Dates: start: 20070316, end: 20070323
  3. ASTOMIN [Concomitant]
     Route: 048
     Dates: start: 20070320, end: 20070323

REACTIONS (2)
  - ABNORMAL BEHAVIOUR [None]
  - HALLUCINATION [None]
